FAERS Safety Report 9783771 (Version 2)
Quarter: 2014Q1

REPORT INFORMATION
  Report Type: Spontaneous
  Country: US (occurrence: US)
  Receive Date: 20131226
  Receipt Date: 20140130
  Transmission Date: 20141002
  Serious: Yes (Other)
  Sender: FDA-Public Use
  Company Number: US-PFIZER INC-2013366521

PATIENT
  Age: 59 Year
  Sex: Female
  Weight: 88.44 kg

DRUGS (2)
  1. PREMARIN [Suspect]
     Indication: VULVOVAGINAL DRYNESS
     Dosage: 0.625 G, 3X/WEEK
     Route: 067
     Dates: start: 201311, end: 201311
  2. PREMARIN [Suspect]
     Indication: VAGINAL HAEMORRHAGE

REACTIONS (4)
  - Vaginal haemorrhage [Unknown]
  - Abdominal pain [Unknown]
  - Vaginal infection [Unknown]
  - Vulvovaginal discomfort [Unknown]
